FAERS Safety Report 24359243 (Version 1)
Quarter: 2024Q3

REPORT INFORMATION
  Report Type: Spontaneous
  Country: US (occurrence: US)
  Receive Date: 20240924
  Receipt Date: 20240924
  Transmission Date: 20241017
  Serious: No
  Sender: Unknown Manufacturer
  Company Number: US-BLUEPRINT MEDICINES CORPORATION-2024BUS004444

PATIENT

DRUGS (5)
  1. GAVRETO [Suspect]
     Active Substance: PRALSETINIB
     Indication: Breast cancer
     Dosage: 100 MILLIGRAM, QD
     Route: 048
  2. VITAMIN C [Concomitant]
     Active Substance: ASCORBIC ACID
     Indication: Product used for unknown indication
     Dosage: 500 MILLIGRAM, TWICE WEEKLY
     Route: 048
  3. VITAMIN D3 [Concomitant]
     Active Substance: CHOLECALCIFEROL
     Indication: Product used for unknown indication
     Dosage: 25 MICROGRAM, QD
     Route: 048
  4. IBUPROFEN [Concomitant]
     Active Substance: IBUPROFEN
     Indication: Product used for unknown indication
     Dosage: 800 MILLIGRAM, PRN
     Route: 048
  5. MISTLETOE EXTRACT [Concomitant]
     Active Substance: VISCUM ALBUM FRUITING TOP
     Indication: Product used for unknown indication
     Dosage: UNK, PRN
     Route: 058

REACTIONS (1)
  - Temperature intolerance [Not Recovered/Not Resolved]
